FAERS Safety Report 5975713-0 (Version None)
Quarter: 2008Q4

REPORT INFORMATION
  Report Type: 
  Country: None (occurrence: None)
  Receive Date: 20081202
  Receipt Date: 20081120
  Transmission Date: 20090506
  Serious: Yes (Other)
  Sender: FDA-Public Use
  Company Number: PHHY2008IT07542

PATIENT
  Sex: Male

DRUGS (2)
  1. EXJADE [Suspect]
     Indication: HAEMOSIDEROSIS
     Dosage: 500 MG DAILY
     Dates: start: 20080309, end: 20080315
  2. EXJADE [Suspect]
     Dosage: UNKNOWN

REACTIONS (3)
  - ANXIETY [None]
  - CENTRAL NERVOUS SYSTEM LESION [None]
  - HALLUCINATION [None]
